FAERS Safety Report 12914034 (Version 3)
Quarter: 2016Q4

REPORT INFORMATION
  Report Type: Spontaneous
  Country: US (occurrence: US)
  Receive Date: 20161105
  Receipt Date: 20161205
  Transmission Date: 20170207
  Serious: No
  Sender: FDA-Public Use
  Company Number: US-B.I. PHARMACEUTICALS,INC./RIDGEFIELD-2016-BI-073880

PATIENT
  Sex: Male

DRUGS (1)
  1. OFEV [Suspect]
     Active Substance: NINTEDANIB
     Indication: IDIOPATHIC PULMONARY FIBROSIS
     Route: 048
     Dates: start: 2013

REACTIONS (8)
  - Dehydration [Unknown]
  - Oral candidiasis [Recovered/Resolved]
  - Colitis ulcerative [Not Recovered/Not Resolved]
  - Dehydration [Unknown]
  - Dysgeusia [Not Recovered/Not Resolved]
  - Parkinson^s disease [Unknown]
  - Back disorder [Unknown]
  - Asthenia [Unknown]

NARRATIVE: CASE EVENT DATE: 2015
